FAERS Safety Report 25762604 (Version 1)
Quarter: 2025Q3

REPORT INFORMATION
  Report Type: Spontaneous
  Country: CH (occurrence: CH)
  Receive Date: 20250904
  Receipt Date: 20250904
  Transmission Date: 20251021
  Serious: Yes (Other)
  Sender: PFIZER
  Company Number: None

PATIENT
  Age: 83 Year
  Sex: Female

DRUGS (15)
  1. RIFABUTIN [Suspect]
     Active Substance: RIFABUTIN
     Dosage: 450 MG, 1X/DAY
     Dates: start: 20250523, end: 20250814
  2. ETHAMBUTOL [Suspect]
     Active Substance: ETHAMBUTOL HYDROCHLORIDE
     Dosage: 700 MG, 1X/DAY
     Dates: start: 20250523, end: 20250814
  3. MOXIFLOXACIN [Suspect]
     Active Substance: MOXIFLOXACIN
     Dosage: 400 MG, 1X/DAY
     Dates: start: 20250602, end: 20250814
  4. ISONIAZID [Concomitant]
     Active Substance: ISONIAZID
     Dosage: 200 MG, 1X/DAY
     Dates: start: 20250523, end: 20250602
  5. BACTRIM [Concomitant]
     Active Substance: SULFAMETHOXAZOLE\TRIMETHOPRIM
     Dates: start: 20250714, end: 20250720
  6. ATOVAQUONE [Concomitant]
     Active Substance: ATOVAQUONE
     Dosage: 1500 MG, 1X/DAY
     Dates: start: 20250720
  7. DOVATO [Concomitant]
     Active Substance: DOLUTEGRAVIR SODIUM\LAMIVUDINE
     Indication: HIV infection
     Dosage: 1 DF, 1X/DAY
  8. ASPIRIN [Concomitant]
     Active Substance: ASPIRIN
     Dates: end: 202506
  9. BIKTARVY [Concomitant]
     Active Substance: BICTEGRAVIR SODIUM\EMTRICITABINE\TENOFOVIR ALAFENAMIDE FUMARATE
     Dosage: 1 DF, 1X/DAY
     Dates: start: 20250714, end: 20250718
  10. ATORVASTATIN [Concomitant]
     Active Substance: ATORVASTATIN
     Dosage: 10 MG, 1X/DAY
     Dates: end: 20250522
  11. AMOXICILLIN\CLAVULANATE POTASSIUM [Concomitant]
     Active Substance: AMOXICILLIN\CLAVULANATE POTASSIUM
     Dosage: 1.2 G, 4X/DAY (EVERY 6 HOURS)
     Dates: start: 20250527, end: 20250531
  12. PERINDOPRIL [Concomitant]
     Active Substance: PERINDOPRIL
     Dates: end: 202506
  13. ROSUVASTATIN [Concomitant]
     Active Substance: ROSUVASTATIN
     Dosage: 5 MG, 1X/DAY
     Dates: start: 20250523
  14. PYRAZINAMIDE [Concomitant]
     Active Substance: PYRAZINAMIDE
     Dosage: 1 G, 1X/DAY
     Dates: start: 20250523, end: 20250717
  15. VITAMIN B6 [Concomitant]
     Active Substance: PYRIDOXINE HYDROCHLORIDE
     Dosage: 40 MG, 1X/DAY
     Dates: start: 20250523, end: 20250814

REACTIONS (7)
  - Pruritus [Recovering/Resolving]
  - Toxic skin eruption [Unknown]
  - Lymphocyte count decreased [Unknown]
  - Rash erythematous [Recovering/Resolving]
  - Leukopenia [Unknown]
  - Macule [Unknown]
  - Off label use [Unknown]

NARRATIVE: CASE EVENT DATE: 20250523
